FAERS Safety Report 8580199-6 (Version None)
Quarter: 2012Q3

REPORT INFORMATION
  Report Type: 
  Country: None (occurrence: None)
  Receive Date: 20120808
  Receipt Date: 20120727
  Transmission Date: 20120928
  Serious: No
  Sender: FDA-Public Use
  Company Number: US-ASTRAZENECA-2012SE39423

PATIENT
  Age: 81 Year
  Sex: Female
  Weight: 77.1 kg

DRUGS (13)
  1. NOVOLOG [Concomitant]
     Indication: DIABETES MELLITUS
  2. BUPROPION HCL [Concomitant]
  3. TRAMADOL HCL [Concomitant]
  4. SEROQUEL [Suspect]
     Indication: DEPRESSION
     Route: 048
  5. LEVOTHYROXINE SODIUM [Concomitant]
  6. SEROQUEL [Suspect]
     Route: 048
  7. SIMVASTATIN [Concomitant]
     Indication: BLOOD CHOLESTEROL ABNORMAL
  8. LANTUS [Concomitant]
  9. DESSICARE [Concomitant]
  10. CALCITRIOL [Concomitant]
  11. SENOSILDRATE [Concomitant]
  12. SEROQUEL [Suspect]
     Route: 048
  13. GABAPENTIN [Concomitant]

REACTIONS (11)
  - INSOMNIA [None]
  - CRYING [None]
  - MALAISE [None]
  - MOOD SWINGS [None]
  - FEELING ABNORMAL [None]
  - DRUG DOSE OMISSION [None]
  - GAIT DISTURBANCE [None]
  - PAIN [None]
  - BIPOLAR DISORDER [None]
  - CONFUSIONAL STATE [None]
  - ABDOMINAL PAIN UPPER [None]
